FAERS Safety Report 4296020-0 (Version None)
Quarter: 2004Q1

REPORT INFORMATION
  Report Type: 
  Country: None (occurrence: None)
  Receive Date: 20040203
  Receipt Date: 20040129
  Transmission Date: 20041129
  Serious: Yes (Death, Congenital Anomaly)
  Sender: FDA-Public Use
  Company Number: 2003-BP-09509BP

PATIENT
  Age: 0 Day
  Sex: Female

DRUGS (3)
  1. VIRAMUNE [Suspect]
     Indication: HIV INFECTION
     Dosage: 400 MG (200 MG, 2 IN 1 D), IU
     Route: 015
     Dates: start: 20021112
  2. COMBIVIR [Suspect]
     Indication: HIV INFECTION
     Dosage: 2 DAILY, IU
     Route: 015
     Dates: start: 20021029
  3. FOLATE SUPPLEMENTS [Concomitant]

REACTIONS (9)
  - ABDOMINAL DISTENSION [None]
  - CHORIOAMNIONITIS [None]
  - FOETAL DISTRESS SYNDROME [None]
  - INTRA-UTERINE DEATH [None]
  - MATERNAL DRUGS AFFECTING FOETUS [None]
  - OEDEMA PERIPHERAL [None]
  - PLACENTAL DISORDER [None]
  - SKULL MALFORMATION [None]
  - UMBILICAL CORD ABNORMALITY [None]
